FAERS Safety Report 5331901-8 (Version None)
Quarter: 2007Q1

REPORT INFORMATION
  Report Type: 
  Country: None (occurrence: None)
  Receive Date: 20070306
  Receipt Date: 20060602
  Transmission Date: 20070707
  Serious: Yes (Death, Hospitalization)
  Sender: FDA-Public Use
  Company Number: A03200603902

PATIENT
  Age: 50 Year
  Sex: Female

DRUGS (1)
  1. PLAVIX [Suspect]
     Indication: STENT PLACEMENT
     Dosage: 300 MG LOADING DOSE FOLLOWED BY 75 MG QD, THEREAFTER - ORAL
     Route: 048
     Dates: start: 20060501

REACTIONS (4)
  - EPISTAXIS [None]
  - HAEMORRHAGE [None]
  - PETECHIAE [None]
  - THROMBOTIC THROMBOCYTOPENIC PURPURA [None]
